FAERS Safety Report 5341945-8 (Version None)
Quarter: 2007Q2

REPORT INFORMATION
  Report Type: 
  Country: None (occurrence: None)
  Receive Date: 20070601
  Receipt Date: 20070523
  Transmission Date: 20071010
  Serious: Yes (Hospitalization)
  Sender: FDA-Public Use
  Company Number: PHHO2007JP09056

PATIENT
  Age: 67 Year
  Sex: Female
  Weight: 60 kg

DRUGS (12)
  1. VOLTAREN [Suspect]
     Indication: RHEUMATOID ARTHRITIS
     Dosage: 25 MG, QD
     Route: 048
     Dates: end: 20070306
  2. ISCOTIN [Suspect]
     Dosage: 400 MG, QD
     Route: 048
     Dates: start: 20060420, end: 20070306
  3. ETANERCEPT [Suspect]
     Indication: RHEUMATOID ARTHRITIS
     Route: 058
     Dates: start: 20061130, end: 20060301
  4. PROGRAF [Suspect]
     Indication: RHEUMATOID ARTHRITIS
     Route: 058
     Dates: start: 20051027, end: 20070306
  5. PREDONINE [Suspect]
     Indication: RHEUMATOID ARTHRITIS
     Dosage: 2.5 MG, QD
     Route: 048
     Dates: end: 20060306
  6. HYPEN [Suspect]
     Indication: RHEUMATOID ARTHRITIS
     Dosage: 400 MG, QD
     Route: 048
     Dates: end: 20070306
  7. METHOTREXATE SODIUM [Suspect]
     Indication: RHEUMATOID ARTHRITIS
     Dates: end: 20070306
  8. FOLIAMIN [Concomitant]
  9. KOLANTYL [Concomitant]
  10. DIOVAN [Concomitant]
  11. ONE-ALPHA [Concomitant]
  12. GASTER [Concomitant]

REACTIONS (8)
  - DYSPNOEA [None]
  - HEPATITIS B [None]
  - HEPATORENAL SYNDROME [None]
  - JAUNDICE [None]
  - MALAISE [None]
  - OEDEMA [None]
  - URINE OUTPUT DECREASED [None]
  - WEIGHT INCREASED [None]
